FAERS Safety Report 10016373 (Version 1)
Quarter: 2014Q1

REPORT INFORMATION
  Report Type: Report from Study
  Country: US (occurrence: US)
  Receive Date: 20140317
  Receipt Date: 20140317
  Transmission Date: 20141002
  Serious: Yes (Other)
  Sender: FDA-Public Use
  Company Number: US-BAXTER-2014BAX012122

PATIENT
  Age: 38 Year
  Sex: Male

DRUGS (4)
  1. CYCLOPHOSPHAMIDE FOR INJECTION, USP [Suspect]
     Indication: PULMONARY ALVEOLAR HAEMORRHAGE
     Route: 042
  2. CYCLOPHOSPHAMIDE FOR INJECTION, USP [Suspect]
     Indication: ANTIPHOSPHOLIPID SYNDROME
  3. GAMMAGARD LIQUID [Suspect]
     Indication: PULMONARY ALVEOLAR HAEMORRHAGE
     Dosage: 2 GM/KG
     Route: 042
  4. GAMMAGARD LIQUID [Suspect]
     Indication: ANTIPHOSPHOLIPID SYNDROME

REACTIONS (1)
  - Disease progression [Unknown]
